FAERS Safety Report 10020626 (Version 2)
Quarter: 2014Q2

REPORT INFORMATION
  Report Type: Report from Study
  Country: US (occurrence: US)
  Receive Date: 20140319
  Receipt Date: 20140403
  Transmission Date: 20141212
  Serious: Yes (Hospitalization)
  Sender: FDA-Public Use
  Company Number: PHEH2014US004940

PATIENT
  Age: 69 Year
  Sex: Male

DRUGS (1)
  1. TASIGNA [Suspect]
     Indication: CHRONIC MYELOID LEUKAEMIA
     Dosage: 300 MG, BID
     Route: 048

REACTIONS (7)
  - Fall [Unknown]
  - Limb injury [Unknown]
  - Asthenia [Unknown]
  - Abasia [Unknown]
  - Micturition disorder [Unknown]
  - Weight decreased [Unknown]
  - Dizziness [Unknown]
